FAERS Safety Report 9145214 (Version 1)
Quarter: 2013Q1

REPORT INFORMATION
  Report Type: Spontaneous
  Country: US (occurrence: None)
  Receive Date: 20130226
  Receipt Date: 20130226
  Transmission Date: 20140127
  Serious: Yes (Other)
  Sender: FDA-Public Use
  Company Number: None

PATIENT
  Age: 16 Year
  Sex: Female
  Weight: 54.43 kg

DRUGS (1)
  1. FOCALIN [Suspect]
     Route: 048
     Dates: start: 20130101, end: 20130223

REACTIONS (15)
  - Palpitations [None]
  - Heart rate increased [None]
  - Anxiety [None]
  - Paranoia [None]
  - Nervousness [None]
  - Muscle spasms [None]
  - Dry throat [None]
  - Oropharyngeal pain [None]
  - Nausea [None]
  - Depression [None]
  - Obsessive-compulsive disorder [None]
  - Irritability [None]
  - Nightmare [None]
  - Insomnia [None]
  - Decreased appetite [None]
